FAERS Safety Report 5043656-5 (Version None)
Quarter: 2006Q3

REPORT INFORMATION
  Report Type: 
  Country: None (occurrence: None)
  Receive Date: 20060706
  Receipt Date: 20060324
  Transmission Date: 20061208
  Serious: Yes (Hospitalization)
  Sender: FDA-Public Use
  Company Number: JP-ABBOTT-06P-087-0329198-00

PATIENT
  Sex: Male

DRUGS (6)
  1. KALETRA [Suspect]
     Indication: HIV INFECTION
     Route: 048
     Dates: start: 20060316, end: 20060320
  2. TENOFOVIR [Suspect]
     Indication: HIV INFECTION
     Route: 048
     Dates: start: 20060316, end: 20060320
  3. PL [Suspect]
     Indication: NASOPHARYNGITIS
     Route: 048
     Dates: start: 20060318, end: 20060320
  4. LOXOPROFEN SODIUM [Suspect]
     Indication: NASOPHARYNGITIS
     Route: 048
     Dates: start: 20060318, end: 20060320
  5. LAMIVUDINE [Concomitant]
     Indication: HIV INFECTION
     Route: 048
     Dates: start: 20060316, end: 20060320
  6. ALDIOXA [Concomitant]
     Indication: DRUG USE FOR UNKNOWN INDICATION
     Route: 048
     Dates: start: 20060318, end: 20060320

REACTIONS (5)
  - DIALYSIS [None]
  - INCORRECT DOSE ADMINISTERED [None]
  - PYREXIA [None]
  - RENAL FAILURE ACUTE [None]
  - RENAL TUBULAR NECROSIS [None]
